FAERS Safety Report 16172800 (Version 1)
Quarter: 2019Q2

REPORT INFORMATION
  Report Type: Spontaneous
  Country: US (occurrence: US)
  Receive Date: 20190409
  Receipt Date: 20190409
  Transmission Date: 20190711
  Serious: Yes (Hospitalization, Other)
  Sender: FDA-Public Use
  Company Number: US-AUROBINDO-AUR-APL-2019-018207

PATIENT

DRUGS (3)
  1. METFORMIN [Suspect]
     Active Substance: METFORMIN HYDROCHLORIDE
     Indication: TYPE 2 DIABETES MELLITUS
     Dosage: UNK
     Route: 065
  2. SIMVASTATIN. [Concomitant]
     Active Substance: SIMVASTATIN
     Indication: PRODUCT USED FOR UNKNOWN INDICATION
     Dosage: UNK
     Route: 065
  3. INSULIN [Concomitant]
     Active Substance: INSULIN NOS
     Indication: PRODUCT USED FOR UNKNOWN INDICATION
     Dosage: UNK
     Route: 065

REACTIONS (20)
  - Fatigue [Recovering/Resolving]
  - Circulatory collapse [Recovering/Resolving]
  - Tachypnoea [Recovering/Resolving]
  - Shock [Recovering/Resolving]
  - Hypothermia [Recovering/Resolving]
  - Cardiac arrest [Recovering/Resolving]
  - Toxicity to various agents [Unknown]
  - Nausea [Recovering/Resolving]
  - Somnolence [Recovering/Resolving]
  - Diarrhoea haemorrhagic [Recovering/Resolving]
  - Drug intolerance [Unknown]
  - Renal impairment [Recovering/Resolving]
  - Vomiting [Recovering/Resolving]
  - Tachycardia [Recovering/Resolving]
  - Mental status changes [Recovering/Resolving]
  - Lactic acidosis [Recovering/Resolving]
  - Confusional state [Recovering/Resolving]
  - Product use in unapproved indication [Unknown]
  - Abdominal pain [Recovering/Resolving]
  - Hypotension [Recovering/Resolving]
